FAERS Safety Report 4507396-0 (Version None)
Quarter: 2004Q4

REPORT INFORMATION
  Report Type: 
  Country: None (occurrence: None)
  Receive Date: 20041118
  Receipt Date: 20041105
  Transmission Date: 20050328
  Serious: Yes (Other)
  Sender: FDA-Public Use
  Company Number: 2004068968

PATIENT
  Sex: Female

DRUGS (6)
  1. NEURONTIN [Suspect]
     Indication: ILL-DEFINED DISORDER
     Dosage: 2400 MG
  2. MUSCLE RELAXANTS (MUSCLE RELAXANTS) [Suspect]
     Indication: ILL-DEFINED DISORDER
  3. VICODIN [Suspect]
     Indication: ILL-DEFINED DISORDER
  4. IBUPROFEN [Suspect]
     Indication: ILL-DEFINED DISORDER
  5. PARACETAMOL (PARACETAMOL) [Suspect]
     Indication: ILL-DEFINED DISORDER
  6. EXCEDRIN P.M. (DIPHENHYDRAMINE CITRATE, PARACETAMOL) [Suspect]
     Indication: ILL-DEFINED DISORDER

REACTIONS (4)
  - DRUG INEFFECTIVE [None]
  - MIGRAINE [None]
  - OSTEOARTHRITIS [None]
  - ROAD TRAFFIC ACCIDENT [None]
